FAERS Safety Report 20848670 (Version 2)
Quarter: 2022Q4

REPORT INFORMATION
  Report Type: Report from Study
  Country: CA (occurrence: CA)
  Receive Date: 20220519
  Receipt Date: 20221123
  Transmission Date: 20230113
  Serious: Yes (Other)
  Sender: FDA-Public Use
  Company Number: CA-ABBVIE-22K-028-4398741-00

PATIENT
  Sex: Female

DRUGS (4)
  1. SKYRIZI [Suspect]
     Active Substance: RISANKIZUMAB-RZAA
     Indication: Psoriasis
     Route: 058
     Dates: start: 20210618
  2. SKYRIZI [Suspect]
     Active Substance: RISANKIZUMAB-RZAA
     Route: 058
     Dates: start: 20220425
  3. CEPHALEXIN [Suspect]
     Active Substance: CEPHALEXIN
     Indication: Postoperative wound infection
     Route: 065
  4. CORTISOL [Suspect]
     Active Substance: HYDROCORTISONE
     Indication: Product used for unknown indication
     Route: 065

REACTIONS (20)
  - Hip arthroplasty [Unknown]
  - Scar [Unknown]
  - Muscle spasms [Unknown]
  - Drug ineffective [Unknown]
  - Osteoarthritis [Unknown]
  - Postoperative wound infection [Unknown]
  - Diarrhoea [Unknown]
  - Incision site complication [Unknown]
  - Injection site pain [Unknown]
  - Incision site haemorrhage [Unknown]
  - Incision site discharge [Unknown]
  - Acne [Unknown]
  - Dry skin [Unknown]
  - Wound [Unknown]
  - Cough [Unknown]
  - Pruritus [Unknown]
  - Unevaluable event [Unknown]
  - Skin atrophy [Unknown]
  - Onychoclasis [Unknown]
  - Impaired healing [Unknown]

NARRATIVE: CASE EVENT DATE: 20220101
